FAERS Safety Report 12509612 (Version 1)
Quarter: 2016Q2

REPORT INFORMATION
  Report Type: Report from Study
  Country: JP (occurrence: JP)
  Receive Date: 20160629
  Receipt Date: 20160629
  Transmission Date: 20160815
  Serious: Yes (Death, Other)
  Sender: FDA-Public Use
  Company Number: JP-JNJFOC-20160624751

PATIENT
  Age: 69 Year
  Sex: Male

DRUGS (13)
  1. FOSCAVIR [Concomitant]
     Active Substance: FOSCARNET SODIUM
     Indication: CYTOMEGALOVIRUS INFECTION
     Route: 042
     Dates: start: 20141206, end: 20141216
  2. VFEND [Concomitant]
     Active Substance: VORICONAZOLE
     Route: 048
     Dates: start: 20141215, end: 20141223
  3. FEBURIC [Concomitant]
     Active Substance: FEBUXOSTAT
     Route: 048
     Dates: start: 20141225, end: 20150104
  4. DOXIL [Suspect]
     Active Substance: DOXORUBICIN HYDROCHLORIDE
     Indication: KAPOSI^S SARCOMA AIDS RELATED
     Route: 042
     Dates: start: 20141121, end: 20141121
  5. VALIXA [Concomitant]
     Active Substance: VALGANCICLOVIR
     Route: 048
     Dates: start: 20141204, end: 20141205
  6. ISENTRESS [Concomitant]
     Active Substance: RALTEGRAVIR POTASSIUM
     Indication: HIV INFECTION
     Route: 048
     Dates: start: 20141112, end: 20150105
  7. VALIXA [Concomitant]
     Active Substance: VALGANCICLOVIR
     Route: 048
     Dates: start: 20141112, end: 20141203
  8. SAMTIREL [Concomitant]
     Active Substance: ATOVAQUONE
     Route: 048
     Dates: start: 20141122, end: 20150104
  9. MEROPENEM. [Concomitant]
     Active Substance: MEROPENEM
     Indication: CYSTITIS HAEMORRHAGIC
     Route: 042
     Dates: start: 20141212, end: 20141224
  10. ROCEPHIN [Concomitant]
     Active Substance: CEFTRIAXONE SODIUM
     Indication: CYSTITIS HAEMORRHAGIC
     Route: 042
     Dates: start: 20141226, end: 20141229
  11. NEXIUM [Concomitant]
     Active Substance: ESOMEPRAZOLE MAGNESIUM
     Route: 048
     Dates: start: 20141113, end: 20150104
  12. EPZICOM [Concomitant]
     Active Substance: ABACAVIR SULFATE\LAMIVUDINE
     Indication: HIV INFECTION
     Route: 048
     Dates: start: 20141112, end: 20150105
  13. MEROPENEM. [Concomitant]
     Active Substance: MEROPENEM
     Indication: CYSTITIS HAEMORRHAGIC
     Route: 042
     Dates: start: 20141126, end: 20141210

REACTIONS (3)
  - Diffuse large B-cell lymphoma [Fatal]
  - Cardiac failure [Not Recovered/Not Resolved]
  - White blood cell count decreased [Fatal]

NARRATIVE: CASE EVENT DATE: 20141209
